FAERS Safety Report 24097226 (Version 3)
Quarter: 2024Q4

REPORT INFORMATION
  Report Type: Spontaneous
  Country: JP (occurrence: JP)
  Receive Date: 20240716
  Receipt Date: 20241203
  Transmission Date: 20250114
  Serious: Yes (Death, Hospitalization, Other)
  Sender: MERCK
  Company Number: JP-MSD-2407JPN001811J

PATIENT
  Age: 33 Year
  Sex: Female

DRUGS (4)
  1. KEYTRUDA [Suspect]
     Active Substance: PEMBROLIZUMAB
     Indication: Triple negative breast cancer
     Dosage: UNK
     Route: 041
  2. KEYTRUDA [Suspect]
     Active Substance: PEMBROLIZUMAB
     Indication: PD-L1 positive cancer
  3. PACLITAXEL [Suspect]
     Active Substance: PACLITAXEL
     Indication: Triple negative breast cancer
     Dosage: UNK
     Route: 065
  4. PACLITAXEL [Suspect]
     Active Substance: PACLITAXEL
     Indication: PD-L1 positive cancer

REACTIONS (9)
  - Death [Fatal]
  - Pancytopenia [Unknown]
  - Haemophagocytic lymphohistiocytosis [Unknown]
  - Pyrexia [Recovering/Resolving]
  - Hypoalbuminaemia [Unknown]
  - Serum ferritin increased [Unknown]
  - Interleukin level increased [Unknown]
  - Blood lactate dehydrogenase increased [Unknown]
  - Hyponatraemia [Unknown]
